FAERS Safety Report 8614177-5 (Version None)
Quarter: 2012Q3

REPORT INFORMATION
  Report Type: 
  Country: None (occurrence: None)
  Receive Date: 20120813
  Receipt Date: 20120813
  Transmission Date: 20120928
  Serious: Yes (Other)
  Sender: FDA-Public Use
  Company Number: None

PATIENT
  Age: 47 Year
  Sex: Female
  Weight: 70.3075 kg

DRUGS (2)
  1. PROMETHAZINE [Suspect]
     Indication: NAUSEA
     Dosage: 25 MG TABLET 1 TABLET EVERY 8 H PO
     Route: 048
     Dates: start: 20120809, end: 20120809
  2. PROMETHAZINE [Suspect]
     Indication: GASTROENTERITIS
     Dosage: 25 MG TABLET 1 TABLET EVERY 8 H PO
     Route: 048
     Dates: start: 20120809, end: 20120809

REACTIONS (3)
  - RASH ERYTHEMATOUS [None]
  - HYPOAESTHESIA ORAL [None]
  - RASH PRURITIC [None]
